FAERS Safety Report 18905047 (Version 1)
Quarter: 2021Q1

REPORT INFORMATION
  Report Type: Spontaneous
  Country: SG (occurrence: SG)
  Receive Date: 20210217
  Receipt Date: 20210217
  Transmission Date: 20210420
  Serious: Yes (Other)
  Sender: FDA-Public Use
  Company Number: SG-ARBOR PHARMACEUTICALS, LLC-SG-2021ARB000179

PATIENT
  Sex: Female

DRUGS (3)
  1. HYDRALAZINE HYDROCHLORIDE\ISOSORBIDE DINITRATE [Suspect]
     Active Substance: HYDRALAZINE HYDROCHLORIDE\ISOSORBIDE DINITRATE
     Indication: CARDIORENAL SYNDROME
     Dosage: 60 MG OF H AND ISDN 30 MG DAILY (20/10 MG THREE TIMES DAILY) [STARING DOSE]
     Route: 048
  2. HYDRALAZINE HYDROCHLORIDE\ISOSORBIDE DINITRATE [Suspect]
     Active Substance: HYDRALAZINE HYDROCHLORIDE\ISOSORBIDE DINITRATE
     Dosage: 120 MG, H AND ISDN 60 MG (40/20 MG THREE TIMES DAILY), [MAINTENANCE DOSE ON DAY 7]
     Route: 048
  3. HYDRALAZINE HYDROCHLORIDE\ISOSORBIDE DINITRATE [Suspect]
     Active Substance: HYDRALAZINE HYDROCHLORIDE\ISOSORBIDE DINITRATE
     Indication: CARDIORENAL SYNDROME

REACTIONS (1)
  - Drug eruption [Recovered/Resolved]
